FAERS Safety Report 13277150 (Version 1)
Quarter: 2017Q1

REPORT INFORMATION
  Report Type: Spontaneous
  Country: US (occurrence: US)
  Receive Date: 20170228
  Receipt Date: 20170228
  Transmission Date: 20170428
  Serious: Yes (Life-Threatening, Hospitalization)
  Sender: FDA-Public Use
  Company Number: US-STANDARD HOMEOPATHIC COMPANY-1063672

PATIENT
  Sex: Female

DRUGS (1)
  1. BIOPLASMA [Suspect]
     Active Substance: HOMEOPATHICS
     Indication: NASOPHARYNGITIS
     Route: 048
     Dates: start: 2016, end: 2016

REACTIONS (3)
  - Oedema [None]
  - Hyperkalaemia [None]
  - Muscle spasms [None]

NARRATIVE: CASE EVENT DATE: 20161108
